FAERS Safety Report 19352332 (Version 1)
Quarter: 2021Q2

REPORT INFORMATION
  Report Type: Spontaneous
  Country: US (occurrence: US)
  Receive Date: 20210601
  Receipt Date: 20210601
  Transmission Date: 20210717
  Serious: Yes (Other)
  Sender: FDA-Public Use
  Company Number: US-ASTRAZENECA-2021A481837

PATIENT
  Sex: Female
  Weight: 77.1 kg

DRUGS (3)
  1. UNSPECIFIED [Concomitant]
     Active Substance: UNSPECIFIED INGREDIENT
  2. BYDUREON BCISE [Suspect]
     Active Substance: EXENATIDE
     Indication: DIABETES MELLITUS
     Route: 058
  3. BYDUREON [Suspect]
     Active Substance: EXENATIDE
     Indication: DIABETES MELLITUS
     Route: 058

REACTIONS (6)
  - Injection site pain [Unknown]
  - Cataract [Unknown]
  - Intentional device misuse [Unknown]
  - Incorrect dose administered by device [Unknown]
  - Vision blurred [Unknown]
  - Device issue [Unknown]
